FAERS Safety Report 5992008-X (Version None)
Quarter: 2008Q4

REPORT INFORMATION
  Report Type: 
  Country: None (occurrence: None)
  Receive Date: 20081211
  Receipt Date: 20081204
  Transmission Date: 20090506
  Serious: Yes (Hospitalization, Other)
  Sender: FDA-Public Use
  Company Number: US-ROXANE LABORATORIES, INC.-2008-RO-00359RO

PATIENT
  Age: 80 Year
  Sex: Female

DRUGS (3)
  1. MEGESTROL ACETATE [Suspect]
     Indication: DECREASED APPETITE
     Dosage: 400MG
  2. LEVOFLOXACIN [Suspect]
     Indication: PNEUMONIA
     Dosage: 500MG
     Route: 048
  3. DEXAMETHASONE [Concomitant]
     Indication: ADRENAL INSUFFICIENCY
     Dosage: 4MG
     Route: 042

REACTIONS (7)
  - CARDIAC MURMUR [None]
  - COUGH [None]
  - DELIRIUM [None]
  - DYSPNOEA [None]
  - RESPIRATORY ACIDOSIS [None]
  - SECONDARY ADRENOCORTICAL INSUFFICIENCY [None]
  - SINUS TACHYCARDIA [None]
